FAERS Safety Report 4739757-9 (Version None)
Quarter: 2005Q3

REPORT INFORMATION
  Report Type: 
  Country: None (occurrence: None)
  Receive Date: 20050810
  Receipt Date: 20050510
  Transmission Date: 20060218
  Serious: Yes (Disabling, Other)
  Sender: FDA-Public Use
  Company Number: US-GLAXOSMITHKLINE-A0557981A

PATIENT
  Age: 50 Year
  Sex: Male

DRUGS (3)
  1. PAXIL [Suspect]
     Indication: POST-TRAUMATIC STRESS DISORDER
     Dosage: 90MG TWICE PER DAY
     Route: 048
  2. ATIVAN [Concomitant]
  3. LEVITRA [Concomitant]

REACTIONS (7)
  - FALL [None]
  - GRANDIOSITY [None]
  - HYPOMANIA [None]
  - IRRITABILITY [None]
  - MANIA [None]
  - OVERDOSE [None]
  - SYNCOPE [None]
